FAERS Safety Report 7326372-6 (Version None)
Quarter: 2011Q1

REPORT INFORMATION
  Report Type: 
  Country: None (occurrence: None)
  Receive Date: 20110302
  Receipt Date: 20110224
  Transmission Date: 20110831
  Serious: Yes (Life-Threatening, Hospitalization)
  Sender: FDA-Public Use
  Company Number: PHHO2010DE06653

PATIENT
  Sex: Male
  Weight: 90.1 kg

DRUGS (17)
  1. BLINDED ALISKIREN [Suspect]
     Dosage: CODE NOT BROKEN
     Route: 048
     Dates: start: 20110216
  2. AMARYL [Concomitant]
  3. SIMVASTATIN [Concomitant]
  4. LEVOTHYROXINE SODIUM [Concomitant]
  5. BLINDED ALISKIREN [Suspect]
     Dosage: NO TREATMENT
     Dates: start: 20110213, end: 20110215
  6. BLINDED ENALAPRIL [Suspect]
     Dosage: CODE NOT BROKEN
     Route: 048
     Dates: start: 20110216
  7. ANTICOAGULANTS [Concomitant]
  8. BLINDED NO TREATMENT RECEIVED [Suspect]
     Dosage: NO TREATMENT
     Dates: start: 20110213, end: 20110215
  9. JANUVIA [Concomitant]
  10. BLINDED ALISKIREN [Suspect]
     Indication: CARDIAC FAILURE
     Dosage: CODE NOT BROKEN
     Route: 048
     Dates: start: 20100220, end: 20110212
  11. BLINDED ENALAPRIL [Suspect]
     Indication: CARDIAC FAILURE
     Dosage: CODE NOT BROKEN
     Route: 048
     Dates: start: 20100220, end: 20110212
  12. BLINDED ENALAPRIL [Suspect]
     Dosage: NO TREATMENT
     Dates: start: 20110213, end: 20110215
  13. SPIRONOLACTONE [Concomitant]
  14. BLINDED NO TREATMENT RECEIVED [Suspect]
     Indication: CARDIAC FAILURE
     Dosage: CODE NOT BROKEN
     Route: 048
     Dates: start: 20100220, end: 20110212
  15. BLINDED NO TREATMENT RECEIVED [Suspect]
     Dosage: CODE NOT BROKEN
     Route: 048
     Dates: start: 20110216
  16. NEBIVOLOL [Concomitant]
  17. SPIRIVA [Concomitant]

REACTIONS (12)
  - PYREXIA [None]
  - PNEUMONIA [None]
  - INGUINAL HERNIA, OBSTRUCTIVE [None]
  - HERNIA REPAIR [None]
  - ORCHIDECTOMY [None]
  - OSTEOARTHRITIS [None]
  - DISEASE PROGRESSION [None]
  - CARDIAC FAILURE [None]
  - HAEMOPTYSIS [None]
  - DYSPNOEA [None]
  - PAIN [None]
  - CORONARY ARTERY STENOSIS [None]
